FAERS Safety Report 4437654-X (Version None)
Quarter: 2004Q3

REPORT INFORMATION
  Report Type: 
  Country: None (occurrence: None)
  Receive Date: 20040728
  Receipt Date: 20040319
  Transmission Date: 20050211
  Serious: No
  Sender: FDA-Public Use
  Company Number: USA040362553

PATIENT
  Sex: Male

DRUGS (2)
  1. STRATTERA [Suspect]
     Dosage: 40 MG/2 DAY
     Dates: start: 20040315
  2. LEXAPRO [Concomitant]

REACTIONS (4)
  - DRUG INTERACTION [None]
  - HEADACHE [None]
  - NAUSEA [None]
  - VISION BLURRED [None]
